FAERS Safety Report 8807870 (Version 1)
Quarter: 2012Q4

REPORT INFORMATION
  Report Type: Report from Study
  Country: KR (occurrence: KR)
  Receive Date: 20120925
  Receipt Date: 20120925
  Transmission Date: 20130627
  Serious: Yes (Hospitalization)
  Sender: FDA-Public Use
  Company Number: KR-GLAXOSMITHKLINE-B0832925A

PATIENT
  Sex: Female
  Weight: 67 kg

DRUGS (7)
  1. TYKERB [Suspect]
     Indication: BREAST CANCER
     Dosage: 1250MG Per day
     Route: 048
     Dates: start: 20120119
  2. ZOMETA [Concomitant]
     Indication: BONE DENSITY DECREASED
     Dosage: 4MG Per day
     Route: 042
     Dates: start: 20110531
  3. GAVISCON [Concomitant]
     Indication: PROPHYLAXIS
     Dosage: 50MG Three times per day
     Route: 048
     Dates: start: 20110531
  4. CALCIUM CARBONATE [Concomitant]
     Indication: BONE DENSITY DECREASED
     Dosage: 80MG Per day
     Route: 048
     Dates: start: 20110531
  5. UNASYN [Concomitant]
     Indication: ANTIBIOTIC PROPHYLAXIS
     Dosage: 375MG Three times per day
     Route: 048
     Dates: start: 20120731, end: 20120807
  6. BACTROBAN [Concomitant]
     Indication: ANTIBIOTIC PROPHYLAXIS
     Dosage: 10G Per day
     Route: 061
     Dates: start: 20120731
  7. TERRAMYCIN [Concomitant]
     Indication: ANTIBIOTIC PROPHYLAXIS
     Route: 061
     Dates: start: 20120731, end: 20120731

REACTIONS (1)
  - Uterine haemorrhage [Recovered/Resolved]
